FAERS Safety Report 14708679 (Version 1)
Quarter: 2018Q2

REPORT INFORMATION
  Report Type: Spontaneous
  Country: US (occurrence: US)
  Receive Date: 20180403
  Receipt Date: 20180403
  Transmission Date: 20180711
  Serious: No
  Sender: FDA-Public Use
  Company Number: US-CELGENEUS-USA-20180310110

PATIENT
  Age: 52 Year
  Sex: Male

DRUGS (1)
  1. OTEZLA [Suspect]
     Active Substance: APREMILAST
     Indication: PSORIASIS
     Route: 048
     Dates: start: 20170810, end: 20171011

REACTIONS (3)
  - Malaise [Recovered/Resolved]
  - Therapy non-responder [Unknown]
  - Arthralgia [Recovered/Resolved]

NARRATIVE: CASE EVENT DATE: 20170810
